FAERS Safety Report 6733307-3 (Version None)
Quarter: 2010Q2

REPORT INFORMATION
  Report Type: 
  Country: None (occurrence: None)
  Receive Date: 20100520
  Receipt Date: 20100511
  Transmission Date: 20101027
  Serious: Yes (Other)
  Sender: FDA-Public Use
  Company Number: DE-PFIZER INC-2010048734

PATIENT
  Age: 66 Year
  Sex: Male
  Weight: 92.971 kg

DRUGS (2)
  1. SORTIS [Suspect]
     Indication: HYPERLIPIDAEMIA
     Dosage: 20 MG, 1X/DAY
     Route: 048
     Dates: start: 20010101, end: 20100301
  2. SORTIS [Suspect]
     Indication: METABOLIC SYNDROME

REACTIONS (2)
  - POLYNEUROPATHY [None]
  - TARSAL TUNNEL SYNDROME [None]
